FAERS Safety Report 20310916 (Version 2)
Quarter: 2022Q1

REPORT INFORMATION
  Report Type: Report from Study
  Country: RU (occurrence: RU)
  Receive Date: 20220107
  Receipt Date: 20220118
  Transmission Date: 20220423
  Serious: Yes (Death, Hospitalization, Other)
  Sender: FDA-Public Use
  Company Number: RU-BRISTOL-MYERS SQUIBB COMPANY-BMS-2020-109825

PATIENT
  Age: 69 Year
  Sex: Male
  Weight: 122 kg

DRUGS (6)
  1. LINRODOSTAT MESYLATE [Suspect]
     Active Substance: LINRODOSTAT MESYLATE
     Indication: Bladder cancer
     Dosage: 1 TAB
     Route: 048
     Dates: start: 20201015, end: 20201031
  2. NIVOLUMAB [Suspect]
     Active Substance: NIVOLUMAB
     Indication: Bladder cancer
     Dosage: 360 MILLIGRAM
     Route: 042
     Dates: start: 20201015, end: 20201015
  3. CISPLATIN [Suspect]
     Active Substance: CISPLATIN
     Indication: Bladder cancer
     Dosage: 140 MILLIGRAM
     Route: 065
     Dates: start: 20201015, end: 20201015
  4. GEMCITABINE HYDROCHLORIDE [Suspect]
     Active Substance: GEMCITABINE HYDROCHLORIDE
     Indication: Bladder cancer
     Dosage: 2000 MILLIGRAM
     Route: 042
     Dates: start: 20201015, end: 20201027
  5. METOPROLOL TARTRATE [Concomitant]
     Active Substance: METOPROLOL TARTRATE
     Indication: Sinus tachycardia
     Dosage: 25 MILLIGRAM
     Route: 048
     Dates: start: 20201031
  6. INDAPAMIDE [Concomitant]
     Active Substance: INDAPAMIDE
     Indication: Sinus tachycardia
     Dosage: 1.5 MILLIGRAM
     Route: 048
     Dates: start: 20201031

REACTIONS (1)
  - Cardiac failure acute [Fatal]

NARRATIVE: CASE EVENT DATE: 20201114
